FAERS Safety Report 6702385-X (Version None)
Quarter: 2010Q2

REPORT INFORMATION
  Report Type: 
  Country: None (occurrence: None)
  Receive Date: 20100429
  Receipt Date: 20100423
  Transmission Date: 20101027
  Serious: Yes (Hospitalization)
  Sender: FDA-Public Use
  Company Number: A0789074A

PATIENT
  Age: 59 Year
  Sex: Female
  Weight: 100.9 kg

DRUGS (11)
  1. AVANDIA [Suspect]
     Indication: TYPE 2 DIABETES MELLITUS
     Dosage: 4MG PER DAY
     Route: 048
     Dates: start: 20050214, end: 20070501
  2. AVANDAMET [Suspect]
     Indication: TYPE 2 DIABETES MELLITUS
     Route: 048
  3. OXYGEN [Concomitant]
  4. METFORMIN [Concomitant]
  5. SINGULAIR [Concomitant]
  6. HYDROXYZINE [Concomitant]
  7. ZOLOFT [Concomitant]
  8. MUCINEX [Concomitant]
  9. PRILOSEC [Concomitant]
  10. ALBUTEROL [Concomitant]
  11. LAXATIVE [Concomitant]

REACTIONS (4)
  - ANGINA UNSTABLE [None]
  - ARTERIOSCLEROSIS CORONARY ARTERY [None]
  - CORONARY ARTERY RESTENOSIS [None]
  - MYOCARDIAL INFARCTION [None]
